FAERS Safety Report 9282562 (Version 2)
Quarter: 2013Q2

REPORT INFORMATION
  Report Type: Spontaneous
  Country: DE (occurrence: DE)
  Receive Date: 20130510
  Receipt Date: 20130607
  Transmission Date: 20140414
  Serious: Yes (Other)
  Sender: FDA-Public Use
  Company Number: DE-PFIZER INC-2013140599

PATIENT
  Age: 75 Year
  Sex: Female

DRUGS (1)
  1. DETRUSITOL [Suspect]
     Dosage: UNK

REACTIONS (1)
  - Dysphagia [Unknown]
